FAERS Safety Report 11119667 (Version 1)
Quarter: 2015Q2

REPORT INFORMATION
  Report Type: Spontaneous
  Country: US (occurrence: None)
  Receive Date: 20150515
  Receipt Date: 20150515
  Transmission Date: 20150821
  Serious: Yes (Life-Threatening)
  Sender: FDA-Public Use
  Company Number: None

PATIENT
  Age: 69 Year
  Sex: Female
  Weight: 95.26 kg

DRUGS (10)
  1. NIFEDIPINE ER 30 MG KREMERS-URBAN PHARMA CEUTICALS [Suspect]
     Active Substance: NIFEDIPINE
     Indication: HYPERTENSION
     Dosage: 1 PILL
     Route: 048
     Dates: start: 20141106, end: 20150106
  2. AMBIEN??? [Concomitant]
  3. LEG VEIN [Concomitant]
  4. GINKO??? [Concomitant]
  5. ASPIRIN ?? [Concomitant]
  6. GLUCOSAMINE CHONDROITIN??? [Concomitant]
  7. COQ 10 [Concomitant]
     Active Substance: UBIDECARENONE
  8. VITAMIN B12 [Concomitant]
     Active Substance: CYANOCOBALAMIN
  9. METOPROLOL [Concomitant]
     Active Substance: METOPROLOL
  10. METFORMIN [Concomitant]
     Active Substance: METFORMIN HYDROCHLORIDE

REACTIONS (2)
  - Adverse drug reaction [None]
  - Malaise [None]

NARRATIVE: CASE EVENT DATE: 20150106
